FAERS Safety Report 4338238-4 (Version None)
Quarter: 2004Q2

REPORT INFORMATION
  Report Type: 
  Country: None (occurrence: None)
  Receive Date: 20040409
  Receipt Date: 20040401
  Transmission Date: 20050107
  Serious: Yes (Hospitalization)
  Sender: FDA-Public Use
  Company Number: IT-JNJFOC-20040400683

PATIENT
  Age: 39 Year
  Sex: Male

DRUGS (1)
  1. REMICADE [Suspect]
     Indication: DRUG USE FOR UNKNOWN INDICATION
     Dosage: INTRAVENOUS
     Route: 042

REACTIONS (6)
  - ABDOMINAL PAIN UPPER [None]
  - BRADYCARDIA [None]
  - DYSPNOEA [None]
  - HEADACHE [None]
  - PRURITUS [None]
  - SUPRAVENTRICULAR EXTRASYSTOLES [None]
